FAERS Safety Report 5084784-8 (Version None)
Quarter: 2006Q3

REPORT INFORMATION
  Report Type: 
  Country: None (occurrence: None)
  Receive Date: 20060814
  Receipt Date: 20060726
  Transmission Date: 20061208
  Serious: Yes (Other)
  Sender: FDA-Public Use
  Company Number: IL200607004720

PATIENT
  Age: 55 Year
  Sex: Male

DRUGS (4)
  1. CYMBALTA [Suspect]
     Indication: DIABETIC NEUROPATHY
     Dosage: 60 MG, DAILY (1/D), ORAL
     Route: 048
  2. RAMIPRIL [Concomitant]
  3. LERCANIDIPINE [Concomitant]
  4. HYDROCHLOROTHIAZIDE [Concomitant]

REACTIONS (1)
  - BLOOD PRESSURE INCREASED [None]
